FAERS Safety Report 6196900-5 (Version None)
Quarter: 2009Q2

REPORT INFORMATION
  Report Type: 
  Country: None (occurrence: None)
  Receive Date: 20090518
  Receipt Date: 20090518
  Transmission Date: 20091009
  Serious: No
  Sender: FDA-Public Use
  Company Number: None

PATIENT
  Sex: Female
  Weight: 100 kg

DRUGS (1)
  1. GAMUNEX [Suspect]
     Indication: HYPOGAMMAGLOBULINAEMIA
     Dosage: 40 GMS X1 DOSE Q3-4 WKS IV
     Route: 042
     Dates: start: 20090425

REACTIONS (6)
  - ARTHRALGIA [None]
  - MALAISE [None]
  - PAIN [None]
  - PETECHIAE [None]
  - PRODUCT SUBSTITUTION ISSUE [None]
  - PYREXIA [None]
